FAERS Safety Report 4330456-4 (Version None)
Quarter: 2004Q1

REPORT INFORMATION
  Report Type: 
  Country: None (occurrence: None)
  Receive Date: 20040330
  Receipt Date: 20040317
  Transmission Date: 20041129
  Serious: Yes (Life-Threatening, Hospitalization)
  Sender: FDA-Public Use
  Company Number: UK067793

PATIENT
  Age: 44 Year
  Sex: Male
  Weight: 118 kg

DRUGS (6)
  1. NEUPOGEN [Suspect]
     Indication: CHEMOTHERAPY
     Dosage: 300 MCG, 1 IN 1 AS NECESSARY, SC
     Route: 058
     Dates: start: 20040103, end: 20040223
  2. CYCLOPHOSPHAMIDE [Suspect]
     Dosage: 1650 MG, 1 IN 1 AS NECESSARY, IV
     Route: 042
  3. DOXORUBICIN HYDROCHLORIDE [Concomitant]
  4. VINCRISTINE SULFATE [Concomitant]
  5. PREDNISOLONE [Concomitant]
  6. RITUXIMAB [Concomitant]

REACTIONS (2)
  - ACUTE RESPIRATORY DISTRESS SYNDROME [None]
  - WHITE BLOOD CELL COUNT INCREASED [None]
